FAERS Safety Report 17006959 (Version 1)
Quarter: 2019Q4

REPORT INFORMATION
  Report Type: Spontaneous
  Country: CN (occurrence: CN)
  Receive Date: 20191107
  Receipt Date: 20191107
  Transmission Date: 20200122
  Serious: Yes (Other)
  Sender: FDA-Public Use
  Company Number: CN-BAXTER-2019BAX022204

PATIENT
  Age: 6 Year
  Sex: Female
  Weight: 27 kg

DRUGS (32)
  1. 0.9% SODIUM CHLORIDE INJECTION [Suspect]
     Active Substance: SODIUM CHLORIDE
     Dosage: DOSE RE-INTRODUCED. VINCRISTINE SULFATE + 0.9% SODIUM CHLORIDE
     Route: 042
  2. 5% GLUCOSE  INJECTION [Suspect]
     Active Substance: DEXTROSE
     Dosage: DOSE RE-INTRODUCED. CYTARABINE HYDROCHLORIDE + 5% GLUCOSE
     Route: 041
  3. VINCRISTINE SULFATE. [Suspect]
     Active Substance: VINCRISTINE SULFATE
     Dosage: THIRD CHEMOTHERAPY. VINCRISTINE SULFATE 1.25 MG + 0.9% SODIUM CHLORIDE 10 ML
     Route: 042
     Dates: start: 20191004, end: 20191004
  4. AIYANG (PEGASPARGASE) [Suspect]
     Active Substance: PEGASPARGASE
     Indication: ACUTE LYMPHOCYTIC LEUKAEMIA
     Dosage: TWO CHEMOTHERAPIES
     Route: 030
  5. ENDOXAN [Suspect]
     Active Substance: CYCLOPHOSPHAMIDE
     Indication: ACUTE LYMPHOCYTIC LEUKAEMIA
     Dosage: TWO CHEMOTHERAPIES. ENDOXAN + 0.9% SODIUM CHLORIDE
     Route: 041
  6. 0.9% SODIUM CHLORIDE INJECTION [Suspect]
     Active Substance: SODIUM CHLORIDE
     Dosage: THIRD CHEMOTHERAPY. VINCRISTINE SULFATE 1.25 MG + 0.9% SODIUM CHLORIDE 10 ML
     Route: 042
     Dates: start: 20191004, end: 20191004
  7. VINCRISTINE SULFATE. [Suspect]
     Active Substance: VINCRISTINE SULFATE
     Dosage: THIRD CHEMOTHERAPY. VINCRISTINE SULFATE 1.25 MG + 0.9% SODIUM CHLORIDE 10 ML
     Route: 042
     Dates: start: 20190927, end: 20190927
  8. VINCRISTINE SULFATE. [Suspect]
     Active Substance: VINCRISTINE SULFATE
     Dosage: DOSE RE-INTRODUCED. VINCRISTINE SULFATE + 0.9% SODIUM CHLORIDE
     Route: 042
  9. 0.9% SODIUM CHLORIDE INJECTION [Suspect]
     Active Substance: SODIUM CHLORIDE
     Dosage: DOSE RE-INTRODUCED. CYTOSAR + DEXAMETHASONE SODIUM PHOSPHATE + 0.9% SODIUM CHLORIDE
     Route: 037
  10. 5% GLUCOSE  INJECTION [Suspect]
     Active Substance: DEXTROSE
     Indication: MEDICATION DILUTION
     Dosage: TWO CHEMOTHERAPIES. CYTARABINE HYDROCHLORIDE + 5% GLUCOSE
     Route: 041
  11. CYTOSAR [Suspect]
     Active Substance: CYTARABINE
     Dosage: DOSE RE-INTRODUCED. CYTOSAR + DEXAMETHASONE SODIUM PHOSPHATE + 0.9% SODIUM CHLORIDE
     Route: 037
  12. CYTARABINE HYDROCHLORIDE [Suspect]
     Active Substance: CYTARABINE HYDROCHLORIDE
     Dosage: DOSE RE-INTRODUCED. CYTARABINE HYDROCHLORIDE + 5% GLUCOSE
     Route: 041
  13. DEXAMETHASONE SODIUM PHOSPHATE. [Suspect]
     Active Substance: DEXAMETHASONE SODIUM PHOSPHATE
     Dosage: THIRD CHEMOTHERAPY. CYTOSAR 0.035G + DEXAMETHASONE SODIUM PHOSPHATE 2.5MG + 0.9% SODIUM CHLORIDE 3ML
     Route: 037
     Dates: start: 20190927, end: 20190927
  14. DEXAMETHASONE SODIUM PHOSPHATE. [Suspect]
     Active Substance: DEXAMETHASONE SODIUM PHOSPHATE
     Dosage: DOSE RE-INTRODUCED. CYTOSAR + DEXAMETHASONE SODIUM PHOSPHATE + 0.9% SODIUM CHLORIDE
     Route: 037
  15. 0.9% SODIUM CHLORIDE INJECTION [Suspect]
     Active Substance: SODIUM CHLORIDE
     Dosage: TWO CHEMOTHERAPIES. CYTOSAR + DEXAMETHASONE SODIUM PHOSPHATE + 0.9% SODIUM CHLORIDE
     Route: 037
  16. AIYANG (PEGASPARGASE) [Suspect]
     Active Substance: PEGASPARGASE
     Dosage: THIRD CHEMOTHERAPY
     Route: 030
     Dates: start: 20190927, end: 20190927
  17. ENDOXAN [Suspect]
     Active Substance: CYCLOPHOSPHAMIDE
     Dosage: THIRD CHEMOTHERAPY. ENDOXAN 0.835 G + 0.9% SODIUM CHLORIDE 250ML
     Route: 041
     Dates: start: 20190927, end: 20190927
  18. ENDOXAN [Suspect]
     Active Substance: CYCLOPHOSPHAMIDE
     Dosage: DOSE RE-INTRODUCED. ENDOXAN + 0.9% SODIUM CHLORIDE
     Route: 041
  19. 0.9% SODIUM CHLORIDE INJECTION [Suspect]
     Active Substance: SODIUM CHLORIDE
     Dosage: TWO CHEMOTHERAPIES. VINCRISTINE SULFATE + 0.9% SODIUM CHLORIDE
     Route: 042
  20. 0.9% SODIUM CHLORIDE INJECTION [Suspect]
     Active Substance: SODIUM CHLORIDE
     Dosage: THIRD CHEMOTHERAPY. VINCRISTINE SULFATE 1.25 MG + 0.9% SODIUM CHLORIDE 10 ML
     Route: 042
     Dates: start: 20190927, end: 20190927
  21. AIYANG (PEGASPARGASE) [Suspect]
     Active Substance: PEGASPARGASE
     Dosage: DOSE RE-INTRODUCED
     Route: 030
  22. DEXAMETHASONE SODIUM PHOSPHATE. [Suspect]
     Active Substance: DEXAMETHASONE SODIUM PHOSPHATE
     Indication: ACUTE LYMPHOCYTIC LEUKAEMIA
     Dosage: TWO CHEMOTHERAPIES. CYTOSAR + DEXAMETHASONE SODIUM PHOSPHATE + 0.9% SODIUM CHLORIDE
     Route: 037
  23. 0.9% SODIUM CHLORIDE INJECTION [Suspect]
     Active Substance: SODIUM CHLORIDE
     Dosage: DOSE RE-INTRODUCED. ENDOXAN + 0.9% SODIUM CHLORIDE
     Route: 041
  24. 5% GLUCOSE  INJECTION [Suspect]
     Active Substance: DEXTROSE
     Dosage: THIRD CHEMOTHERAPY. CYTARABINE HYDROCHLORIDE 0.04 G + 5% GLUCOSE 200 ML
     Route: 041
     Dates: start: 20190927, end: 20191004
  25. CYTOSAR [Suspect]
     Active Substance: CYTARABINE
     Dosage: THIRD CHEMOTHERAPY. CYTOSAR 0.035G + DEXAMETHASONE SODIUM PHOSPHATE 2.5MG + 0.9% SODIUM CHLORIDE 3ML
     Route: 037
     Dates: start: 20190927, end: 20190927
  26. CYTARABINE HYDROCHLORIDE [Suspect]
     Active Substance: CYTARABINE HYDROCHLORIDE
     Dosage: THIRD CHEMOTHERAPY. CYTARABINE HYDROCHLORIDE 0.04 G + 5% GLUCOSE 200 ML
     Route: 041
     Dates: start: 20190927, end: 20191004
  27. VINCRISTINE SULFATE. [Suspect]
     Active Substance: VINCRISTINE SULFATE
     Indication: ACUTE LYMPHOCYTIC LEUKAEMIA
     Dosage: TWO CHEMOTHERAPIES. VINCRISTINE SULFATE + 0.9% SODIUM CHLORIDE
     Route: 042
  28. CYTOSAR [Suspect]
     Active Substance: CYTARABINE
     Indication: ACUTE LYMPHOCYTIC LEUKAEMIA
     Dosage: TWO CHEMOTHERAPIES. CYTOSAR + DEXAMETHASONE SODIUM PHOSPHATE + 0.9% SODIUM CHLORIDE
     Route: 037
  29. CYTARABINE HYDROCHLORIDE [Suspect]
     Active Substance: CYTARABINE HYDROCHLORIDE
     Indication: ACUTE LYMPHOCYTIC LEUKAEMIA
     Dosage: TWO CHEMOTHERAPIES. CYTARABINE HYDROCHLORIDE + 5% GLUCOSE
     Route: 041
  30. 0.9% SODIUM CHLORIDE INJECTION [Suspect]
     Active Substance: SODIUM CHLORIDE
     Indication: MEDICATION DILUTION
     Dosage: TWO CHEMOTHERAPIES. ENDOXAN + 0.9% SODIUM CHLORIDE
     Route: 041
  31. 0.9% SODIUM CHLORIDE INJECTION [Suspect]
     Active Substance: SODIUM CHLORIDE
     Dosage: THIRD CHEMOTHERAPY. ENDOXAN 0.835G + 0.9% SODIUM CHLORIDE 250 ML
     Route: 041
     Dates: start: 20190927, end: 20190927
  32. 0.9% SODIUM CHLORIDE INJECTION [Suspect]
     Active Substance: SODIUM CHLORIDE
     Dosage: THIRD CHEMOTHERAPY. CYTOSAR 0.035G + DEXAMETHASONE SODIUM PHOSPHATE 2.5MG + 0.9% SODIUM CHLORIDE 3ML
     Route: 037
     Dates: start: 20190927, end: 20190927

REACTIONS (1)
  - Bone marrow failure [Recovering/Resolving]

NARRATIVE: CASE EVENT DATE: 20191007
